FAERS Safety Report 16932158 (Version 4)
Quarter: 2019Q4

REPORT INFORMATION
  Report Type: Report from Study
  Country: US (occurrence: US)
  Receive Date: 20191017
  Receipt Date: 20191231
  Transmission Date: 20200122
  Serious: Yes (Hospitalization, Other)
  Sender: FDA-Public Use
  Company Number: US-ACTELION-A-NJ2019-191932

PATIENT
  Sex: Female
  Weight: 35.37 kg

DRUGS (8)
  1. VELETRI [Suspect]
     Active Substance: EPOPROSTENOL
     Indication: PULMONARY ARTERIAL HYPERTENSION
     Dosage: 25.8 NG/KG, PER MIN
     Route: 042
  2. TADALAFIL. [Concomitant]
     Active Substance: TADALAFIL
  3. REMODULIN [Concomitant]
     Active Substance: TREPROSTINIL
  4. LETAIRIS [Concomitant]
     Active Substance: AMBRISENTAN
  5. HEPARIN [Concomitant]
     Active Substance: HEPARIN SODIUM
  6. VELETRI [Suspect]
     Active Substance: EPOPROSTENOL
     Dosage: 28.8 NG/KG, PER MIN
     Route: 042
  7. VELETRI [Suspect]
     Active Substance: EPOPROSTENOL
     Dosage: 33.8 NG/KG, PER MIN
     Route: 042
  8. VELETRI [Suspect]
     Active Substance: EPOPROSTENOL
     Dosage: 8.5 NG/KG, PER MIN
     Route: 042
     Dates: end: 20191214

REACTIONS (13)
  - Catheter site erythema [Unknown]
  - Heart rate irregular [Unknown]
  - Headache [Unknown]
  - Fluid retention [Unknown]
  - Pleural effusion [Unknown]
  - Device infusion issue [Unknown]
  - Cardiac failure [Unknown]
  - Feeling abnormal [Unknown]
  - Rash [Unknown]
  - Device connection issue [Unknown]
  - Flushing [Unknown]
  - Condition aggravated [Unknown]
  - Pulmonary veno-occlusive disease [Unknown]
